FAERS Safety Report 18382561 (Version 1)
Quarter: 2020Q4

REPORT INFORMATION
  Report Type: Spontaneous
  Country: US (occurrence: US)
  Receive Date: 20201014
  Receipt Date: 20201014
  Transmission Date: 20210114
  Serious: Yes (Hospitalization)
  Sender: FDA-Public Use
  Company Number: None

PATIENT
  Age: 45 Year
  Sex: Female

DRUGS (2)
  1. RHUS TOX [Suspect]
     Active Substance: HOMEOPATHICS
     Indication: DERMATITIS CONTACT
     Dosage: ?          OTHER FREQUENCY:ONCE PER MONTH;?
     Route: 048
  2. RHUS TOX [Suspect]
     Active Substance: HOMEOPATHICS
     Indication: PROPHYLAXIS
     Dosage: ?          OTHER FREQUENCY:ONCE PER MONTH;?
     Route: 048

REACTIONS (4)
  - Rash erythematous [None]
  - Dermatitis contact [None]
  - Rash pruritic [None]
  - Rash [None]

NARRATIVE: CASE EVENT DATE: 20201008
